FAERS Safety Report 18735240 (Version 1)
Quarter: 2021Q1

REPORT INFORMATION
  Report Type: Spontaneous
  Country: US (occurrence: US)
  Receive Date: 20210112
  Receipt Date: 20210112
  Transmission Date: 20210419
  Serious: Yes (Hospitalization)
  Sender: FDA-Public Use
  Company Number: None

PATIENT
  Age: 72 Year
  Sex: Male
  Weight: 79.83 kg

DRUGS (1)
  1. ASPIRIN/DIPYRIDAMOLE (ASPIRIN 325MG/DIPYRIDAMOLE 200MG CAP, SA) [Suspect]
     Active Substance: ASPIRIN\DIPYRIDAMOLE
     Indication: TRANSIENT ISCHAEMIC ATTACK
     Dosage: ?          OTHER DOSE:25/200 MG;?
     Route: 048
     Dates: start: 20080715, end: 20180220

REACTIONS (4)
  - Haemodynamic instability [None]
  - Syncope [None]
  - Lower gastrointestinal haemorrhage [None]
  - Orthostatic hypotension [None]

NARRATIVE: CASE EVENT DATE: 20180220
